FAERS Safety Report 21779782 (Version 1)
Quarter: 2022Q4

REPORT INFORMATION
  Report Type: Spontaneous
  Country: IL (occurrence: IL)
  Receive Date: 20221226
  Receipt Date: 20221226
  Transmission Date: 20230113
  Serious: Yes (Congenital Anomaly, Other)
  Sender: FDA-Public Use
  Company Number: IL-Gedeon Richter Plc.-2022_GR_010307

PATIENT
  Sex: 0

DRUGS (1)
  1. LEVONORGESTREL [Suspect]
     Active Substance: LEVONORGESTREL
     Indication: Foetal exposure during pregnancy
     Route: 064

REACTIONS (2)
  - Autism spectrum disorder [Recovered/Resolved with Sequelae]
  - Maternal exposure before pregnancy [Recovered/Resolved]
